FAERS Safety Report 9456826 (Version 3)
Quarter: 2013Q4

REPORT INFORMATION
  Report Type: Spontaneous
  Country: AU (occurrence: AU)
  Receive Date: 20130813
  Receipt Date: 20131126
  Transmission Date: 20140711
  Serious: Yes (Hospitalization, Disabling, Other)
  Sender: FDA-Public Use
  Company Number: AU-B.I. PHARMACEUTICALS,INC./RIDGEFIELD-2013-AU-00970AU

PATIENT
  Age: 75 Year
  Sex: Female
  Weight: 79 kg

DRUGS (4)
  1. PRADAXA [Suspect]
     Indication: ATRIAL FIBRILLATION
     Dosage: 220 MG
     Route: 048
     Dates: start: 201109, end: 20130730
  2. COVERSYL [Concomitant]
     Dosage: 2.5 MG
     Dates: start: 2009
  3. SOTALOL [Concomitant]
     Dosage: 240 MG
     Dates: start: 2009
  4. LIPITOR [Concomitant]
     Dosage: 40 MG
     Dates: start: 2009

REACTIONS (4)
  - Cerebral haemorrhage [Not Recovered/Not Resolved]
  - Blindness [Not Recovered/Not Resolved]
  - Confusional state [Not Recovered/Not Resolved]
  - Neglect of personal appearance [Not Recovered/Not Resolved]
